FAERS Safety Report 8320422-6 (Version None)
Quarter: 2012Q2

REPORT INFORMATION
  Report Type: 
  Country: None (occurrence: None)
  Receive Date: 20120426
  Receipt Date: 20120426
  Transmission Date: 20120825
  Serious: Yes (Hospitalization, Other)
  Sender: FDA-Public Use
  Company Number: None

PATIENT
  Age: 59 Year
  Sex: Female
  Weight: 68.0396 kg

DRUGS (2)
  1. AVELOX [Suspect]
     Indication: BRONCHITIS
     Dosage: 7 PILLS 1 X DAY LAST WEEK OF JULY
  2. PREDNISONE TAB [Suspect]
     Indication: BRONCHITIS
     Dosage: PREDNISONE 4X DAY 1 WEEK, 2X DAY 1 WEEK, 3X DAY 1 WEEK, 1X DAY 1 WEEK  LAST WEEK OF JULY

REACTIONS (3)
  - LIGAMENT RUPTURE [None]
  - TENDONITIS [None]
  - ARTHRALGIA [None]
